FAERS Safety Report 23753207 (Version 1)
Quarter: 2024Q2

REPORT INFORMATION
  Report Type: Spontaneous
  Country: US (occurrence: None)
  Receive Date: 20240417
  Receipt Date: 20240417
  Transmission Date: 20240716
  Serious: Yes (unspecified)
  Sender: FDA-Public Use
  Company Number: None

PATIENT
  Age: 69 Year
  Sex: Female
  Weight: 83.25 kg

DRUGS (1)
  1. NOZIN NASAL SANITIZER [Suspect]
     Active Substance: ALCOHOL
     Indication: Wrong product administered
     Route: 047
     Dates: start: 20240416

REACTIONS (4)
  - Product selection error [None]
  - Wrong product administered [None]
  - Product packaging confusion [None]
  - Product label confusion [None]

NARRATIVE: CASE EVENT DATE: 20240416
